FAERS Safety Report 5564748-8 (Version None)
Quarter: 2007Q4

REPORT INFORMATION
  Report Type: 
  Country: None (occurrence: None)
  Receive Date: 20071218
  Receipt Date: 20071207
  Transmission Date: 20080405
  Serious: Yes (Death)
  Sender: FDA-Public Use
  Company Number: FR-ROCHE-535733

PATIENT
  Age: 48 Year
  Sex: Male

DRUGS (10)
  1. ANEXATE TAB [Suspect]
     Indication: DRUG USE FOR UNKNOWN INDICATION
     Route: 065
     Dates: start: 20071010, end: 20071010
  2. HYPNOVEL [Suspect]
     Indication: DRUG USE FOR UNKNOWN INDICATION
     Route: 065
     Dates: end: 20071010
  3. CLAFORAN [Suspect]
     Indication: DRUG USE FOR UNKNOWN INDICATION
     Route: 065
     Dates: end: 20071008
  4. LOXEN [Suspect]
     Indication: DRUG USE FOR UNKNOWN INDICATION
     Route: 065
     Dates: end: 20071009
  5. MOPRAL [Suspect]
     Indication: DRUG USE FOR UNKNOWN INDICATION
     Route: 065
     Dates: end: 20071009
  6. ULTIVA [Suspect]
     Indication: DRUG USE FOR UNKNOWN INDICATION
     Route: 065
     Dates: end: 20071010
  7. LASILIX [Suspect]
     Indication: DRUG USE FOR UNKNOWN INDICATION
     Route: 065
     Dates: end: 20071010
  8. ARIXTRA [Suspect]
     Indication: DEEP VEIN THROMBOSIS
     Dosage: STRENGTH: 7.5 MG/0.6 ML
     Route: 058
     Dates: end: 20071006
  9. HEPARIN CHOAY [Suspect]
     Indication: DRUG USE FOR UNKNOWN INDICATION
     Route: 065
     Dates: start: 20071006, end: 20071008
  10. ORGARAN [Suspect]
     Indication: DRUG USE FOR UNKNOWN INDICATION
     Dosage: STRENGTH: 750 IU ANTI XA/0.6 ML
     Route: 058
     Dates: start: 20071008, end: 20071010

REACTIONS (2)
  - CEREBRAL HAEMORRHAGE [None]
  - COMA [None]
